FAERS Safety Report 15736617 (Version 2)
Quarter: 2019Q1

REPORT INFORMATION
  Report Type: Spontaneous
  Country: US (occurrence: US)
  Receive Date: 20181218
  Receipt Date: 20190108
  Transmission Date: 20190417
  Serious: No
  Sender: FDA-Public Use
  Company Number: US-JNJFOC-20181140213

PATIENT
  Age: 7 Decade
  Sex: Female
  Weight: 78.02 kg

DRUGS (2)
  1. ROGAINE [Suspect]
     Active Substance: MINOXIDIL
     Route: 061
  2. ROGAINE [Suspect]
     Active Substance: MINOXIDIL
     Indication: ALOPECIA
     Dosage: AS DIRECTED, DAILY
     Route: 061
     Dates: start: 201808, end: 2018

REACTIONS (2)
  - Hair texture abnormal [Recovered/Resolved]
  - Trichorrhexis [Recovered/Resolved]

NARRATIVE: CASE EVENT DATE: 2018
